FAERS Safety Report 8168716-1 (Version None)
Quarter: 2012Q1

REPORT INFORMATION
  Report Type: 
  Country: None (occurrence: None)
  Receive Date: 20120103
  Receipt Date: 20111116
  Transmission Date: 20120608
  Serious: No
  Sender: FDA-Public Use
  Company Number: AE-2011-003602

PATIENT
  Age: 55 Year
  Sex: Male
  Weight: 68.9467 kg

DRUGS (5)
  1. GLIPIZIDE [Concomitant]
  2. METFORMIN HCL [Concomitant]
  3. PEGASYS [Concomitant]
  4. RIBAVIRIN [Concomitant]
  5. INCIVEK [Suspect]
     Dosage: 2250 MG (750 MG, 1 IN 8 HR),ORAL
     Route: 048
     Dates: start: 20111001, end: 20111023

REACTIONS (2)
  - DIZZINESS [None]
  - ANAEMIA [None]
